FAERS Safety Report 8093539-1 (Version None)
Quarter: 2012Q1

REPORT INFORMATION
  Report Type: 
  Country: None (occurrence: None)
  Receive Date: 20120129
  Receipt Date: 20111021
  Transmission Date: 20120608
  Serious: No
  Sender: FDA-Public Use
  Company Number: US-ABBOTT-11P-163-0867161-00

PATIENT
  Age: 28 Year
  Sex: Female

DRUGS (9)
  1. HUMIRA [Suspect]
     Indication: CROHN'S DISEASE
     Dates: start: 20110801
  2. SYNTHROID [Concomitant]
     Indication: HYPOTHYROIDISM
  3. WARFARIN SODIUM [Concomitant]
     Indication: PULMONARY EMBOLISM
     Dates: start: 20110201
  4. TRAMADOL HCL [Concomitant]
     Indication: PAIN
     Dosage: LOWEST DOSE
  5. PRILOSEC OTC [Concomitant]
     Indication: GASTROOESOPHAGEAL REFLUX DISEASE
  6. CELEXA [Concomitant]
     Indication: ANXIETY
  7. ASACOL [Concomitant]
     Indication: CROHN'S DISEASE
  8. TOPAMAX [Concomitant]
     Indication: MIGRAINE
  9. CELEXA [Concomitant]
     Indication: DEPRESSION

REACTIONS (2)
  - MIGRAINE [None]
  - ARTHRALGIA [None]
